FAERS Safety Report 8764209 (Version 1)
Quarter: 2012Q4

REPORT INFORMATION
  Report Type: Report from Study
  Country: CA (occurrence: CA)
  Receive Date: 20120831
  Receipt Date: 20120831
  Transmission Date: 20130627
  Serious: Yes (Death, Hospitalization)
  Sender: FDA-Public Use
  Company Number: CA-SANOFI-AVENTIS-2012SA062356

PATIENT
  Sex: Male

DRUGS (3)
  1. DOCETAXEL [Suspect]
     Indication: PROSTATE CANCER
     Dosage: day 1
     Route: 042
  2. UNSPECIFIED INGREDIENT [Suspect]
     Indication: PROSTATE CANCER
     Dosage: for 14days sarting day1 every 21 day cycle
     Route: 048
  3. PREDNISONE [Concomitant]
     Route: 048

REACTIONS (5)
  - Small intestinal obstruction [Fatal]
  - Staphylococcal sepsis [Fatal]
  - Neutropenia [Recovered/Resolved]
  - Diarrhoea [Recovered/Resolved]
  - Dehydration [Recovered/Resolved]
